FAERS Safety Report 5646419-2 (Version None)
Quarter: 2008Q1

REPORT INFORMATION
  Report Type: 
  Country: None (occurrence: None)
  Receive Date: 20080228
  Receipt Date: 20080213
  Transmission Date: 20080703
  Serious: Yes (Death, Hospitalization)
  Sender: FDA-Public Use
  Company Number: 2008BM000013

PATIENT
  Age: 11 Year
  Sex: Female
  Weight: 20 kg

DRUGS (15)
  1. NAGLAZYME [Suspect]
     Indication: MUCOPOLYSACCHARIDOSIS VI
     Dosage: 20 MG QW IV
     Route: 042
     Dates: end: 20080118
  2. MEROPENEM [Concomitant]
  3. VANCOMYCIN [Concomitant]
  4. ERYTHROMYCIN [Concomitant]
  5. CIPROFLOXACIN [Concomitant]
  6. VORICONAZOLE [Concomitant]
  7. MILRINONE LACTATE [Concomitant]
  8. FUROSEMIDE [Concomitant]
  9. MORPHINE [Concomitant]
  10. MIDAZOLAM HCL [Concomitant]
  11. NOREPINEPHRINE [Concomitant]
  12. BOSENTAN [Concomitant]
  13. PHENOXYBENZAMINE [Concomitant]
  14. SILDENAFIL CITRATE [Concomitant]
  15. REMIFENTANIL [Concomitant]

REACTIONS (8)
  - AORTIC VALVE INCOMPETENCE [None]
  - CARDIAC ARREST [None]
  - MITRAL VALVE INCOMPETENCE [None]
  - PNEUMONIA [None]
  - PULMONARY HAEMORRHAGE [None]
  - PULMONARY HYPERTENSION [None]
  - RESPIRATORY TRACT INFECTION [None]
  - TRICUSPID VALVE INCOMPETENCE [None]
